FAERS Safety Report 17282354 (Version 1)
Quarter: 2020Q1

REPORT INFORMATION
  Report Type: Spontaneous
  Country: US (occurrence: US)
  Receive Date: 20200117
  Receipt Date: 20200117
  Transmission Date: 20200409
  Serious: Yes (Life-Threatening, Hospitalization, Disabling)
  Sender: FDA-Public Use
  Company Number: None

PATIENT
  Age: 42 Year
  Sex: Male
  Weight: 108 kg

DRUGS (2)
  1. GABAPENTAN [Suspect]
     Active Substance: GABAPENTIN
     Indication: NEUROPATHY PERIPHERAL
     Route: 048
  2. ONE A DAY WOMEND [Concomitant]

REACTIONS (3)
  - Neuropathy peripheral [None]
  - Myocardial infarction [None]
  - Respiratory failure [None]

NARRATIVE: CASE EVENT DATE: 20170118
